FAERS Safety Report 6905922-5 (Version None)
Quarter: 2010Q3

REPORT INFORMATION
  Report Type: 
  Country: None (occurrence: None)
  Receive Date: 20100804
  Receipt Date: 20100728
  Transmission Date: 20110219
  Serious: Yes (Death)
  Sender: FDA-Public Use
  Company Number: IL-CELGENEUS-082-50794-10072842

PATIENT
  Sex: Male

DRUGS (1)
  1. VIDAZA [Suspect]
     Route: 065

REACTIONS (1)
  - CARDIAC FAILURE [None]
